FAERS Safety Report 24683764 (Version 2)
Quarter: 2025Q4

REPORT INFORMATION
  Report Type: Spontaneous
  Country: US (occurrence: US)
  Receive Date: 20241202
  Receipt Date: 20251126
  Transmission Date: 20260118
  Serious: Yes (Other)
  Sender: STRIDES
  Company Number: US-STRIDES ARCOLAB LIMITED-2024SP015712

PATIENT

DRUGS (7)
  1. PREDNISOLONE [Suspect]
     Active Substance: PREDNISOLONE
     Indication: Diffuse large B-cell lymphoma
     Dosage: UNK, CYCLICAL (R-CHOP REGIMEN, 6 CYCLES EACH LASTING 21 DAYS)
     Route: 065
  2. DOXORUBICIN [Suspect]
     Active Substance: DOXORUBICIN
     Indication: Diffuse large B-cell lymphoma
     Dosage: UNK, CYCLICAL (R-CHOP REGIMEN, 6 CYCLES EACH LASTING 21 DAYS)
     Route: 065
  3. EPCORITAMAB [Suspect]
     Active Substance: EPCORITAMAB
     Indication: Diffuse large B-cell lymphoma
     Dosage: 48 MILLIGRAM, CYCLICAL (CYCLE 1-4, WEEKLY, EVERY 2 WEEKS FOR CYCLE 5-6)
     Route: 058
  4. EPCORITAMAB [Suspect]
     Active Substance: EPCORITAMAB
     Dosage: UNK, EVERY 4 WEEKS (28 DAYS CYCLES UP TO A TOTAL OF 1YEAR)
     Route: 058
  5. RITUXIMAB [Suspect]
     Active Substance: RITUXIMAB
     Indication: Diffuse large B-cell lymphoma
     Dosage: UNK, CYCLICAL (R-CHOP REGIMEN, 6 CYCLES EACH LASTING 21 DAYS)
     Route: 065
  6. CYCLOPHOSPHAMIDE [Suspect]
     Active Substance: CYCLOPHOSPHAMIDE
     Indication: Diffuse large B-cell lymphoma
     Dosage: UNK, CYCLICAL (R-CHOP REGIMEN, 6 CYCLES EACH LASTING 21 DAYS)
     Route: 065
  7. VINCRISTINE [Suspect]
     Active Substance: VINCRISTINE
     Indication: Diffuse large B-cell lymphoma
     Dosage: UNK, CYCLICAL (R-CHOP REGIMEN, 6 CYCLES EACH LASTING 21 DAYS)
     Route: 065

REACTIONS (1)
  - Immune effector cell-associated neurotoxicity syndrome [Recovered/Resolved]
